FAERS Safety Report 19787701 (Version 2)
Quarter: 2021Q4

REPORT INFORMATION
  Report Type: Spontaneous
  Country: US (occurrence: US)
  Receive Date: 20210903
  Receipt Date: 20211119
  Transmission Date: 20220303
  Serious: No
  Sender: FDA-Public Use
  Company Number: US-DECIPHERA PHARMACEUTICALS LLC-2021US000598

PATIENT
  Sex: Female

DRUGS (1)
  1. QINLOCK [Suspect]
     Active Substance: RIPRETINIB
     Indication: Product used for unknown indication
     Dosage: 150 MILLIGRAM, QD
     Route: 048

REACTIONS (6)
  - Splinter haemorrhages [Recovered/Resolved]
  - Pain of skin [Unknown]
  - Gingival bleeding [Unknown]
  - Muscle spasms [Unknown]
  - Palmar-plantar erythrodysaesthesia syndrome [Unknown]
  - Alopecia [Unknown]
